FAERS Safety Report 21779148 (Version 1)
Quarter: 2022Q4

REPORT INFORMATION
  Report Type: Spontaneous
  Country: CO (occurrence: CO)
  Receive Date: 20221226
  Receipt Date: 20221226
  Transmission Date: 20230113
  Serious: Yes (Hospitalization, Other)
  Sender: FDA-Public Use
  Company Number: CO-ORG100014127-2022001471

PATIENT
  Age: 33 Year
  Sex: Female
  Weight: 80 kg

DRUGS (12)
  1. METYRAPONE [Suspect]
     Active Substance: METYRAPONE
     Indication: Cushing^s syndrome
     Dosage: 250 MG EVERY 6 HOURS
     Route: 048
     Dates: start: 20220630
  2. Insulin aspart 11 IU [Concomitant]
     Indication: Product used for unknown indication
     Dosage: WITH LUNCH
  3. Insulin degludec + Liraglutide 50 IU [Concomitant]
     Indication: Product used for unknown indication
     Dosage: AT 6 AM
  4. Dapagliflozin/Metformin tabx 5/1000 mg [Concomitant]
     Indication: Product used for unknown indication
     Dosage: EVERY 12 HOURS
  5. LEVOTHYROXINE [Concomitant]
     Active Substance: LEVOTHYROXINE
     Indication: Product used for unknown indication
  6. AMLODIPINE [Concomitant]
     Active Substance: AMLODIPINE BESYLATE
     Indication: Product used for unknown indication
     Dosage: AT NIGHT
  7. CARVEDILOL [Concomitant]
     Active Substance: CARVEDILOL
     Indication: Product used for unknown indication
     Dosage: AT 8 AM
  8. BIOTIN [Concomitant]
     Active Substance: BIOTIN
     Indication: Product used for unknown indication
  9. CHOLECALCIFEROL [Concomitant]
     Active Substance: CHOLECALCIFEROL
     Indication: Product used for unknown indication
  10. SPIRONOLACTONE [Concomitant]
     Active Substance: SPIRONOLACTONE
     Indication: Product used for unknown indication
  11. Pasireotide ampx [Concomitant]
     Indication: Product used for unknown indication
     Dates: start: 20220810
  12. COLLAGEN [Concomitant]
     Active Substance: COLLAGEN
     Indication: Product used for unknown indication

REACTIONS (1)
  - Deep vein thrombosis [Not Recovered/Not Resolved]

NARRATIVE: CASE EVENT DATE: 20221116
